FAERS Safety Report 21179897 (Version 1)
Quarter: 2022Q3

REPORT INFORMATION
  Report Type: Spontaneous
  Country: US (occurrence: None)
  Receive Date: 20220805
  Receipt Date: 20220805
  Transmission Date: 20221027
  Serious: Yes (Hospitalization)
  Sender: FDA-Public Use
  Company Number: None

PATIENT
  Age: 75 Year
  Sex: Male
  Weight: 114 kg

DRUGS (1)
  1. LISINOPRIL [Suspect]
     Active Substance: LISINOPRIL
     Indication: Hypertension
     Dosage: 1/2 TAB EVERY DAY PO? ?
     Route: 048
     Dates: start: 20210223, end: 20220606

REACTIONS (1)
  - Angioedema [None]

NARRATIVE: CASE EVENT DATE: 20220605
